FAERS Safety Report 4493352-8 (Version None)
Quarter: 2004Q4

REPORT INFORMATION
  Report Type: 
  Country: None (occurrence: None)
  Receive Date: 20041102
  Receipt Date: 20041026
  Transmission Date: 20050328
  Serious: Yes (Death, Hospitalization, Other)
  Sender: FDA-Public Use
  Company Number: 14985

PATIENT
  Age: 72 Year
  Sex: Female
  Weight: 71.2147 kg

DRUGS (1)
  1. DAUNORUBICIN HCL [Suspect]
     Indication: ACUTE MYELOID LEUKAEMIA
     Dosage: 45MG/M2 IV DAYS 1 TO 3
     Route: 042
     Dates: start: 20040813, end: 20040901

REACTIONS (8)
  - EPISTAXIS [None]
  - HAEMOGLOBIN DECREASED [None]
  - INFECTION [None]
  - MELAENA [None]
  - NEUTROPHIL COUNT DECREASED [None]
  - PLATELET COUNT DECREASED [None]
  - RED BLOOD CELL COUNT DECREASED [None]
  - WHITE BLOOD CELL COUNT DECREASED [None]
